FAERS Safety Report 19909551 (Version 1)
Quarter: 2021Q4

REPORT INFORMATION
  Report Type: Spontaneous
  Country: None (occurrence: US)
  Receive Date: 20211002
  Receipt Date: 20211002
  Transmission Date: 20220303
  Serious: Yes (Hospitalization, Other)
  Sender: FDA-Public Use
  Company Number: US-HYGENIC CORPORATION-2119090

PATIENT
  Sex: Female

DRUGS (1)
  1. BIOFREEZE COLORLESS ROLL-ON [Suspect]
     Active Substance: MENTHOL
     Indication: Arthritis
     Route: 061
     Dates: start: 20210301

REACTIONS (2)
  - Abscess [Recovering/Resolving]
  - Infection [Recovering/Resolving]

NARRATIVE: CASE EVENT DATE: 20210301
